FAERS Safety Report 6906834-3 (Version None)
Quarter: 2010Q3

REPORT INFORMATION
  Report Type: 
  Country: None (occurrence: None)
  Receive Date: 20100804
  Receipt Date: 20100726
  Transmission Date: 20110219
  Serious: Yes (Other)
  Sender: FDA-Public Use
  Company Number: US-ELI_LILLY_AND_COMPANY-US201007006634

PATIENT
  Sex: Female

DRUGS (1)
  1. HUMALOG [Suspect]
     Dates: start: 20000722

REACTIONS (2)
  - PHYSICAL ASSAULT [None]
  - SURGERY [None]
